FAERS Safety Report 7889792-7 (Version None)
Quarter: 2011Q4

REPORT INFORMATION
  Report Type: 
  Country: None (occurrence: None)
  Receive Date: 20111103
  Receipt Date: 20111024
  Transmission Date: 20120403
  Serious: Yes (Hospitalization)
  Sender: FDA-Public Use
  Company Number: US-GLAXOSMITHKLINE-A0878754A

PATIENT
  Age: 43 Year
  Sex: Male
  Weight: 124.5 kg

DRUGS (10)
  1. AVANDAMET [Suspect]
     Indication: TYPE 2 DIABETES MELLITUS
     Route: 048
     Dates: start: 20030901, end: 20060301
  2. AVANDIA [Suspect]
     Indication: TYPE 2 DIABETES MELLITUS
     Route: 048
     Dates: start: 20030901, end: 20060301
  3. AVAPRO [Concomitant]
  4. SKELAXIN [Concomitant]
  5. LIPITOR [Concomitant]
  6. WELLBUTRIN SR [Concomitant]
  7. AMARYL [Concomitant]
  8. ZESTRIL [Concomitant]
  9. NEURONTIN [Concomitant]
  10. CLONAZEPAM [Concomitant]

REACTIONS (4)
  - MYOCARDIAL INFARCTION [None]
  - FLUID OVERLOAD [None]
  - FLUID RETENTION [None]
  - CARDIAC ARREST [None]
